FAERS Safety Report 6153061-6 (Version None)
Quarter: 2009Q2

REPORT INFORMATION
  Report Type: 
  Country: None (occurrence: None)
  Receive Date: 20090413
  Receipt Date: 20090402
  Transmission Date: 20091009
  Serious: Yes (Death, Other)
  Sender: FDA-Public Use
  Company Number: US-ELI_LILLY_AND_COMPANY-US200903004243

PATIENT
  Age: 29 Year
  Sex: Male
  Weight: 204.8 kg

DRUGS (3)
  1. ZYPREXA [Suspect]
     Indication: BIPOLAR DISORDER
     Dosage: 20 MG, DAILY (1/D)
  2. LITHIUM CARBONATE [Concomitant]
     Dosage: 450 MG, 3/D
  3. DEPAKOTE [Concomitant]
     Dosage: 500 MG, 3/D

REACTIONS (5)
  - OBESITY [None]
  - PULMONARY HYPERTENSION [None]
  - RENAL FAILURE [None]
  - RESPIRATORY FAILURE [None]
  - WEIGHT INCREASED [None]
